FAERS Safety Report 16995610 (Version 3)
Quarter: 2020Q1

REPORT INFORMATION
  Report Type: Spontaneous
  Country: US (occurrence: US)
  Receive Date: 20191105
  Receipt Date: 20200207
  Transmission Date: 20200409
  Serious: No
  Sender: FDA-Public Use
  Company Number: US-PFIZER INC-2018435960

PATIENT
  Age: 55 Year
  Sex: Female

DRUGS (4)
  1. CELEBREX [Suspect]
     Active Substance: CELECOXIB
     Indication: INFLAMMATION
     Dosage: 200 MG, DAILY (1 CAPSULE BY MOUTH DAILY)
     Route: 048
  2. LYRICA [Concomitant]
     Active Substance: PREGABALIN
     Dosage: UNK
     Dates: start: 2009
  3. CELEBREX [Suspect]
     Active Substance: CELECOXIB
     Dosage: UNK, 3X/DAY, (TAKING IT FOR 3 TIMES A DAY )
  4. CELEBREX [Suspect]
     Active Substance: CELECOXIB
     Dosage: UNK UNK, 2X/DAY
     Dates: start: 2009

REACTIONS (2)
  - Intentional product misuse [Unknown]
  - Insomnia [Not Recovered/Not Resolved]
